FAERS Safety Report 25381096 (Version 2)
Quarter: 2025Q3

REPORT INFORMATION
  Report Type: Report from Study
  Country: US (occurrence: US)
  Receive Date: 20250530
  Receipt Date: 20250711
  Transmission Date: 20251021
  Serious: Yes (Hospitalization)
  Sender: MALLINCKRODT
  Company Number: US-MALLINCKRODT-MNK202502341

PATIENT
  Age: 80 Year
  Sex: Male
  Weight: 140 kg

DRUGS (2)
  1. CORTICOTROPIN [Suspect]
     Active Substance: CORTICOTROPIN
     Indication: Vitreous disorder
     Route: 058
     Dates: start: 20240516
  2. CORTICOTROPIN [Suspect]
     Active Substance: CORTICOTROPIN
     Indication: Rheumatoid arthritis
     Route: 058

REACTIONS (6)
  - Staphylococcal sepsis [Recovering/Resolving]
  - Urinary tract infection [Recovering/Resolving]
  - Musculoskeletal stiffness [Unknown]
  - Mobility decreased [Unknown]
  - Cardiac disorder [Unknown]
  - Renal disorder [Unknown]

NARRATIVE: CASE EVENT DATE: 20250401
